FAERS Safety Report 16431094 (Version 1)
Quarter: 2019Q2

REPORT INFORMATION
  Report Type: Spontaneous
  Country: US (occurrence: US)
  Receive Date: 20190614
  Receipt Date: 20190614
  Transmission Date: 20190711
  Serious: No
  Sender: FDA-Public Use
  Company Number: US-PFIZER INC-2019250231

PATIENT
  Age: 49 Year
  Sex: Female
  Weight: 70.31 kg

DRUGS (7)
  1. DULOXETINE. [Concomitant]
     Active Substance: DULOXETINE
     Indication: NEURALGIA
     Dosage: 30 MG, 1X/DAY
     Dates: start: 2008
  2. ALPRAZOLAM. [Concomitant]
     Active Substance: ALPRAZOLAM
     Indication: ANXIETY
     Dosage: 2 DF, 2X/DAY (2 TABLETS TWICE A DAY)
     Dates: start: 2008
  3. GABAPENTIN. [Concomitant]
     Active Substance: GABAPENTIN
     Indication: NEURALGIA
     Dosage: 300 MG, 3X/DAY
     Dates: start: 2008
  4. XELJANZ [Suspect]
     Active Substance: TOFACITINIB CITRATE
     Indication: ARTHRITIS
     Dosage: 5 MG, 2X/DAY
     Route: 048
     Dates: start: 201806, end: 201905
  5. TRAMADOL. [Concomitant]
     Active Substance: TRAMADOL
     Indication: PAIN
     Dosage: 200 MG, 2X/DAY(4 TABLETS 2 TIMES A DAY )
     Dates: start: 2008
  6. TRAMADOL. [Concomitant]
     Active Substance: TRAMADOL
     Dosage: 2 DF, 3X/DAY (2 TABLETS 3 TIMES A DAY)
     Dates: start: 2008
  7. MIRTAZAPINE. [Concomitant]
     Active Substance: MIRTAZAPINE
     Indication: SLEEP DISORDER
     Dosage: 30 MG, 1X/DAY
     Route: 048
     Dates: start: 2008

REACTIONS (1)
  - Drug interaction [Unknown]

NARRATIVE: CASE EVENT DATE: 201905
